FAERS Safety Report 5287329-2 (Version None)
Quarter: 2007Q1

REPORT INFORMATION
  Report Type: 
  Country: None (occurrence: None)
  Receive Date: 20070116
  Receipt Date: 20061211
  Transmission Date: 20070707
  Serious: No
  Sender: FDA-Public Use
  Company Number: 2006SP004368

PATIENT
  Age: 34 Year
  Sex: Female

DRUGS (3)
  1. LUNESTA [Suspect]
     Indication: INSOMNIA
     Dosage: 3 MG; HS; ORAL
     Route: 048
     Dates: start: 20061209
  2. ZOLOFT [Concomitant]
  3. ORAL CONTRACEPTIVE NOS [Concomitant]

REACTIONS (1)
  - DYSGEUSIA [None]
